FAERS Safety Report 7035655-9 (Version None)
Quarter: 2010Q4

REPORT INFORMATION
  Report Type: 
  Country: None (occurrence: None)
  Receive Date: 20101008
  Receipt Date: 20100927
  Transmission Date: 20110411
  Serious: Yes (Hospitalization, Other)
  Sender: FDA-Public Use
  Company Number: CA-MERCK-1009USA05189

PATIENT
  Age: 60 Year
  Sex: Female
  Weight: 75 kg

DRUGS (8)
  1. HYZAAR [Suspect]
     Route: 048
  2. XOLAIR [Suspect]
     Route: 058
  3. AVELOX [Concomitant]
     Route: 065
  4. NORVASC [Concomitant]
     Route: 065
  5. PAXIL [Concomitant]
     Route: 065
  6. SINGULAIR [Concomitant]
     Route: 048
  7. SYMBICORT [Concomitant]
     Route: 065
  8. VENTOLIN [Concomitant]
     Route: 065

REACTIONS (14)
  - COUGH [None]
  - DYSPNOEA [None]
  - HEART RATE INCREASED [None]
  - INFLUENZA [None]
  - LOWER RESPIRATORY TRACT INFECTION [None]
  - OEDEMA PERIPHERAL [None]
  - OXYGEN SATURATION DECREASED [None]
  - PEAK EXPIRATORY FLOW RATE DECREASED [None]
  - PYREXIA [None]
  - RALES [None]
  - RHINORRHOEA [None]
  - SINUSITIS [None]
  - SWELLING FACE [None]
  - WHEEZING [None]
